FAERS Safety Report 16256252 (Version 1)
Quarter: 2019Q2

REPORT INFORMATION
  Report Type: Spontaneous
  Country: US (occurrence: US)
  Receive Date: 20190430
  Receipt Date: 20190430
  Transmission Date: 20190711
  Serious: No
  Sender: FDA-Public Use
  Company Number: US-BAYER-2019-086546

PATIENT
  Age: 85 Year
  Sex: Female
  Weight: 52 kg

DRUGS (4)
  1. MIRALAX [Suspect]
     Active Substance: POLYETHYLENE GLYCOL 3350
     Indication: BLADDER OPERATION
     Dosage: 1 DF, QOD
     Route: 048
     Dates: start: 2015, end: 20190427
  2. MIRALAX [Suspect]
     Active Substance: POLYETHYLENE GLYCOL 3350
     Indication: GASTROINTESTINAL DISORDER
     Dosage: 1 DF, HS
     Route: 048
  3. MIRALAX [Suspect]
     Active Substance: POLYETHYLENE GLYCOL 3350
     Indication: GASTROINTESTINAL DISORDER
     Dosage: 1 DF, HS (17.9G )
     Route: 048
     Dates: start: 2015, end: 20190427
  4. AMPAKINE [Concomitant]
     Dosage: 5 MG
     Route: 048
     Dates: start: 2017

REACTIONS (4)
  - Product physical issue [Unknown]
  - Off label use [Unknown]
  - Drug ineffective [Unknown]
  - Product use in unapproved indication [Unknown]

NARRATIVE: CASE EVENT DATE: 2015
